FAERS Safety Report 4343228-1 (Version None)
Quarter: 2004Q1

REPORT INFORMATION
  Report Type: 
  Country: None (occurrence: None)
  Receive Date: 20040325
  Receipt Date: 20040218
  Transmission Date: 20041129
  Serious: No
  Sender: FDA-Public Use
  Company Number: USA040259684

PATIENT
  Age: 77 Year
  Sex: Female

DRUGS (4)
  1. FORTEO [Suspect]
     Indication: OSTEOPOROSIS
     Dates: start: 20040217
  2. DILANTIN [Concomitant]
  3. ZOCOR [Concomitant]
  4. XANAX [Concomitant]

REACTIONS (4)
  - DIZZINESS [None]
  - FEELING ABNORMAL [None]
  - HEADACHE [None]
  - NAUSEA [None]
